FAERS Safety Report 7487955-6 (Version None)
Quarter: 2011Q2

REPORT INFORMATION
  Report Type: 
  Country: None (occurrence: None)
  Receive Date: 20110511
  Receipt Date: 20110426
  Transmission Date: 20111010
  Serious: Yes (Death)
  Sender: FDA-Public Use
  Company Number: EU-2011-10072

PATIENT
  Age: 65 Year
  Sex: Male

DRUGS (9)
  1. CLOPIDOGREL [Concomitant]
  2. ZOMARIST (METFORMIN HYDROCHLORIDE, VILDAGLIPTIN) [Concomitant]
  3. NORVASC [Concomitant]
  4. CILOSTAZOL [Suspect]
     Indication: INTERMITTENT CLAUDICATION
     Dosage: 200 MG 200 MG MILLIGRAM (S), DAILY DOSE, ORAL
     Route: 048
     Dates: start: 20100101
  5. SINTROM [Concomitant]
  6. ACFOL (FOLIC ACID) [Concomitant]
  7. KARVEZIDE (HYDROCHLOROTHIAZIDE, IRBESARTAN) [Concomitant]
  8. PLETAL [Suspect]
     Indication: INTERMITTENT CLAUDICATION
     Dosage: 100 MG MILLIGRAM (S), UNKNOW, ORAL
     Route: 048
  9. SIMVASTATIN [Concomitant]

REACTIONS (2)
  - CARDIO-RESPIRATORY ARREST [None]
  - ISCHAEMIA [None]
